FAERS Safety Report 5135092-8 (Version None)
Quarter: 2006Q4

REPORT INFORMATION
  Report Type: 
  Country: None (occurrence: None)
  Receive Date: 20060831
  Receipt Date: 20060726
  Transmission Date: 20070319
  Serious: No
  Sender: FDA-Public Use
  Company Number: 2006-BP-05925BP

PATIENT
  Sex: Female

DRUGS (9)
  1. SPIRIVA [Suspect]
     Indication: CHRONIC OBSTRUCTIVE PULMONARY DISEASE
     Dosage: 36 MCG (18 MCG,2 A DAY),IH
     Dates: start: 20000101
  2. ADVAIR (SERETIDE /01420901/) [Concomitant]
  3. FLONASE [Concomitant]
  4. SYNTHROID [Concomitant]
  5. PROZAC (GENERIC) (FLUOXETINE HYDROCHLORIDE) [Concomitant]
  6. ASPIRIN [Concomitant]
  7. FOSAMAX PLUS (ALENDRONATE SODIUM) [Concomitant]
  8. CRESTOR [Concomitant]
  9. TRAMADOL HCL [Concomitant]

REACTIONS (2)
  - DYSGEUSIA [None]
  - THROAT IRRITATION [None]
